FAERS Safety Report 6744426-X (Version None)
Quarter: 2010Q2

REPORT INFORMATION
  Report Type: 
  Country: None (occurrence: None)
  Receive Date: 20100527
  Receipt Date: 20100519
  Transmission Date: 20101027
  Serious: Yes (Other)
  Sender: FDA-Public Use
  Company Number: GB-PFIZER INC-2010062740

PATIENT
  Age: 69 Year
  Sex: Female

DRUGS (4)
  1. CARDURA [Suspect]
     Dosage: UNK
  2. RAMIPRIL [Concomitant]
     Dosage: 10 MG, UNK
  3. IRBESARTAN [Concomitant]
     Dosage: 300 MG, UNK
  4. FUROSEMIDE [Concomitant]
     Dosage: 80 - 120 MG

REACTIONS (1)
  - BLOOD PRESSURE FLUCTUATION [None]
